FAERS Safety Report 8342044-3 (Version None)
Quarter: 2012Q2

REPORT INFORMATION
  Report Type: 
  Country: None (occurrence: None)
  Receive Date: 20120507
  Receipt Date: 20120427
  Transmission Date: 20120825
  Serious: Yes (Death, Other)
  Sender: FDA-Public Use
  Company Number: FR-ROCHE-771600

PATIENT
  Sex: Female
  Weight: 89 kg

DRUGS (6)
  1. AVASTIN [Suspect]
     Dosage: 25MG/ML
     Route: 042
     Dates: start: 20110307, end: 20110307
  2. XELODA [Suspect]
     Indication: BREAST CANCER METASTATIC
     Dosage: FREQUENCY: DAILY
     Route: 048
     Dates: start: 20110214, end: 20110321
  3. XELODA [Suspect]
     Route: 048
     Dates: start: 20110307, end: 20110321
  4. AVASTIN [Suspect]
     Indication: BREAST CANCER METASTATIC
     Dosage: BEVACIZUMAB: 25 MG/ML SOLUTION FOR INFUSION
     Route: 042
     Dates: start: 20110214, end: 20110307
  5. ESCITALOPRAM [Concomitant]
     Indication: DEPRESSION
     Dosage: FREQUENCY: DAILY
     Route: 048
  6. PANTOPRAZOLE [Concomitant]
     Indication: PROPHYLAXIS AGAINST GASTROINTESTINAL ULCER
     Dosage: FREQUENCY: DAILY
     Route: 048

REACTIONS (2)
  - PULMONARY HAEMORRHAGE [None]
  - HAEMOPTYSIS [None]
